FAERS Safety Report 4843167-3 (Version None)
Quarter: 2005Q4

REPORT INFORMATION
  Report Type: 
  Country: None (occurrence: None)
  Receive Date: 20051201
  Receipt Date: 20051128
  Transmission Date: 20060501
  Serious: Yes (Hospitalization)
  Sender: FDA-Public Use
  Company Number: CH-ABBOTT-05P-151-0318037-00

PATIENT
  Sex: Male
  Weight: 59.1 kg

DRUGS (10)
  1. RITONAVIR [Suspect]
     Indication: HIV INFECTION
     Route: 048
     Dates: start: 20011001
  2. RITONAVIR [Suspect]
     Dates: start: 20040824
  3. RITONAVIR [Suspect]
     Dates: start: 20050404
  4. TMC114 [Concomitant]
     Indication: HIV INFECTION
     Route: 065
     Dates: start: 20040824, end: 20050403
  5. TMC114 [Concomitant]
     Dates: start: 20050404
  6. DIDANOSINE [Concomitant]
     Indication: DRUG USE FOR UNKNOWN INDICATION
     Route: 048
     Dates: start: 20040424
  7. TENOFOVIR [Concomitant]
     Indication: HIV INFECTION
     Route: 048
     Dates: start: 20050824
  8. LAMIVUDINE [Concomitant]
     Indication: HIV INFECTION
     Route: 048
     Dates: start: 20050910
  9. PRAVASTATIN [Concomitant]
     Indication: HYPERLIPIDAEMIA
     Route: 048
  10. BACTRIM [Concomitant]
     Indication: ANTIBIOTIC PROPHYLAXIS
     Route: 048

REACTIONS (1)
  - HEPATIC CIRRHOSIS [None]
